FAERS Safety Report 20612217 (Version 1)
Quarter: 2022Q1

REPORT INFORMATION
  Report Type: Spontaneous
  Country: ZA (occurrence: ZA)
  Receive Date: 20220318
  Receipt Date: 20220318
  Transmission Date: 20220423
  Serious: Yes (Other)
  Sender: FDA-Public Use
  Company Number: ZA-TEVA-2022-ZA-2017239

PATIENT
  Age: 73 Year
  Sex: Female
  Weight: 116 kg

DRUGS (1)
  1. DOCETAXEL [Suspect]
     Active Substance: DOCETAXEL
     Indication: Breast cancer
     Dosage: 180 MILLIGRAM DAILY; 80 MILLIGRAMS X 2 VIALS AND 20 MILLIGRAMS X1 VIAL?SIZE OF CONTAINER 4MILLILITER
     Route: 042
     Dates: start: 20220218, end: 20220218

REACTIONS (3)
  - Skin lesion [Unknown]
  - Wound [Unknown]
  - Skin injury [Unknown]
